FAERS Safety Report 24608644 (Version 1)
Quarter: 2024Q4

REPORT INFORMATION
  Report Type: Spontaneous
  Country: US (occurrence: None)
  Receive Date: 20241112
  Receipt Date: 20241112
  Transmission Date: 20250115
  Serious: Yes (Other)
  Sender: Public
  Company Number: None

PATIENT
  Age: 79 Year
  Sex: Male
  Weight: 99.79 kg

DRUGS (1)
  1. FRUZAQLA [Suspect]
     Active Substance: FRUQUINTINIB
     Indication: Colon cancer
     Dosage: FREQUENCY : DAILY;?
     Route: 048
     Dates: start: 20241017, end: 20241110

REACTIONS (5)
  - Peripheral swelling [None]
  - Peripheral swelling [None]
  - Dyspnoea [None]
  - Weight increased [None]
  - Blood pressure increased [None]

NARRATIVE: CASE EVENT DATE: 20241111
